FAERS Safety Report 8494659-X (Version None)
Quarter: 2012Q3

REPORT INFORMATION
  Report Type: 
  Country: None (occurrence: None)
  Receive Date: 20120709
  Receipt Date: 20120703
  Transmission Date: 20120928
  Serious: Yes (Other)
  Sender: FDA-Public Use
  Company Number: PHHY2012ES057015

PATIENT
  Age: 82 Year
  Sex: Female

DRUGS (1)
  1. PREDNISONE [Suspect]
     Indication: POLYMYALGIA RHEUMATICA

REACTIONS (10)
  - CELLULITIS [None]
  - FEELING COLD [None]
  - OEDEMA PERIPHERAL [None]
  - BONE PAIN [None]
  - OEDEMA [None]
  - ERYTHEMA [None]
  - CHILLS [None]
  - BACTERAEMIA [None]
  - PAIN IN EXTREMITY [None]
  - BODY TEMPERATURE INCREASED [None]
